FAERS Safety Report 4780665-5 (Version None)
Quarter: 2005Q3

REPORT INFORMATION
  Report Type: 
  Country: None (occurrence: None)
  Receive Date: 20050927
  Receipt Date: 20050921
  Transmission Date: 20060218
  Serious: Yes (Disabling, Other)
  Sender: FDA-Public Use
  Company Number: ES-MERCK-0509ESP00037

PATIENT
  Age: 69 Year
  Sex: Male

DRUGS (5)
  1. ZETIA [Suspect]
     Indication: HYPERCHOLESTEROLAEMIA
     Route: 048
     Dates: start: 20050201, end: 20050701
  2. ZETIA [Suspect]
     Indication: HYPERTENSION
     Route: 048
     Dates: start: 20050201, end: 20050701
  3. ATORVASTATIN CALCIUM [Concomitant]
     Route: 065
  4. CLOPIDOGREL BISULFATE [Concomitant]
     Route: 065
  5. ATENOLOL [Concomitant]
     Route: 065

REACTIONS (4)
  - ABDOMINAL PAIN UPPER [None]
  - ANOREXIA [None]
  - DEPRESSION [None]
  - VOMITING [None]
